FAERS Safety Report 8048442-X (Version None)
Quarter: 2012Q1

REPORT INFORMATION
  Report Type: 
  Country: None (occurrence: None)
  Receive Date: 20120117
  Receipt Date: 20120112
  Transmission Date: 20120608
  Serious: No
  Sender: FDA-Public Use
  Company Number: US-PFIZER INC-2012002245

PATIENT
  Sex: Female
  Weight: 49.887 kg

DRUGS (1)
  1. LYRICA [Suspect]
     Indication: FIBROMYALGIA
     Dosage: UNK
     Dates: end: 20120102

REACTIONS (4)
  - DIZZINESS [None]
  - WITHDRAWAL SYNDROME [None]
  - FATIGUE [None]
  - MALAISE [None]
